FAERS Safety Report 5662562-6 (Version None)
Quarter: 2008Q1

REPORT INFORMATION
  Report Type: 
  Country: None (occurrence: None)
  Receive Date: 20080310
  Receipt Date: 20080310
  Transmission Date: 20080703
  Serious: Yes (Life-Threatening, Hospitalization)
  Sender: FDA-Public Use
  Company Number: None

PATIENT
  Age: 10 Year
  Sex: Male
  Weight: 33.5662 kg

DRUGS (3)
  1. POLYETHYLENE GLYCOL [Suspect]
     Indication: CONSTIPATION
     Dosage: 17 GRAMS DAILY PO
     Route: 048
     Dates: start: 20080108, end: 20080201
  2. POLYETHYLENE GLYCOL [Suspect]
     Indication: LAXATIVE SUPPORTIVE CARE
     Dosage: 17 GRAMS DAILY PO
     Route: 048
     Dates: start: 20080108, end: 20080201
  3. EX-LAX [Concomitant]

REACTIONS (17)
  - CRYING [None]
  - DYSKINESIA [None]
  - EOSINOPHILIC OESOPHAGITIS [None]
  - EYE PRURITUS [None]
  - FOOD ALLERGY [None]
  - INFLAMMATION [None]
  - MYALGIA [None]
  - OESOPHAGITIS [None]
  - PAIN [None]
  - PAIN IN EXTREMITY [None]
  - PALLOR [None]
  - PYREXIA [None]
  - SINUSITIS [None]
  - SKIN TEST POSITIVE [None]
  - TREMOR [None]
  - VIRAL INFECTION [None]
  - VOMITING [None]
